FAERS Safety Report 5130458-4 (Version None)
Quarter: 2006Q4

REPORT INFORMATION
  Report Type: 
  Country: None (occurrence: None)
  Receive Date: 20061019
  Receipt Date: 20060106
  Transmission Date: 20070319
  Serious: Yes (Death, Life-Threatening, Hospitalization, Other)
  Sender: FDA-Public Use
  Company Number: PE-BRISTOL-MYERS SQUIBB COMPANY-13239470

PATIENT
  Age: 67 Year
  Sex: Female

DRUGS (12)
  1. ABATACEPT [Suspect]
     Indication: RHEUMATOID ARTHRITIS
     Route: 042
     Dates: start: 20051110
  2. METHOTREXATE [Suspect]
     Indication: RHEUMATOID ARTHRITIS
     Route: 048
     Dates: start: 20040816, end: 20060102
  3. CALCIUM CARBONATE [Concomitant]
     Dates: start: 19990530, end: 20060102
  4. CAPTOPRIL [Concomitant]
     Dates: start: 20010829, end: 20060102
  5. ARTIFICIAL TEARS [Concomitant]
     Dates: start: 20011205, end: 20060102
  6. IBUPROFEN [Concomitant]
     Dates: start: 20040816, end: 20060102
  7. ACETAMINOPHEN [Concomitant]
     Dates: start: 20050113, end: 20060102
  8. ALPRAZOLAM [Concomitant]
     Dates: start: 20050113, end: 20060102
  9. FOLIC ACID [Concomitant]
     Dates: start: 20020710, end: 20060102
  10. ALENDRONATE SODIUM [Concomitant]
     Dates: start: 20020114, end: 20060102
  11. RANITIDINE [Concomitant]
     Dates: start: 20030623, end: 20060102
  12. PREDNISONE TAB [Concomitant]
     Dates: start: 20050113, end: 20060102

REACTIONS (7)
  - ANAEMIA [None]
  - DEHYDRATION [None]
  - HYPOVOLAEMIC SHOCK [None]
  - METABOLIC ACIDOSIS [None]
  - PNEUMONIA [None]
  - RESPIRATORY FAILURE [None]
  - SEPSIS [None]
